FAERS Safety Report 9380180 (Version 1)
Quarter: 2013Q3

REPORT INFORMATION
  Report Type: Spontaneous
  Country: US (occurrence: US)
  Receive Date: 20130702
  Receipt Date: 20130702
  Transmission Date: 20140515
  Serious: No
  Sender: FDA-Public Use
  Company Number: US-009507513-1307USA000868

PATIENT
  Sex: 0

DRUGS (2)
  1. AZASITE [Suspect]
     Dosage: 1 GTT, BID  (ONE DROP IN EACH EYE TWICE A DAY)
     Route: 047
  2. AZASITE [Suspect]
     Dosage: 1 GTT, QD (ONE DROP IN EACH EYE ONCE A DAY)
     Route: 047

REACTIONS (3)
  - Inappropriate schedule of drug administration [Unknown]
  - Incorrect product storage [Unknown]
  - No adverse event [Unknown]
